FAERS Safety Report 8150295-6 (Version None)
Quarter: 2012Q1

REPORT INFORMATION
  Report Type: 
  Country: None (occurrence: None)
  Receive Date: 20120220
  Receipt Date: 20120207
  Transmission Date: 20120608
  Serious: Yes (Hospitalization, Other)
  Sender: FDA-Public Use
  Company Number: US-ELI_LILLY_AND_COMPANY-US201202001091

PATIENT
  Age: 82 Year
  Sex: Female

DRUGS (8)
  1. TYLENOL (CAPLET) [Concomitant]
  2. PRESERVISION EYE VITAMIN AND MINERAL SUPPL. [Concomitant]
  3. FISH OIL [Concomitant]
  4. FORTEO [Suspect]
     Indication: OSTEOPOROSIS
     Dosage: 20 UG, QD
  5. OMEPRA [Concomitant]
  6. FORTEO [Suspect]
     Dosage: 20 UG, QD
     Dates: end: 20120109
  7. VITAMINS WITH MINERALS [Concomitant]
  8. CITRACAL [Concomitant]

REACTIONS (1)
  - COLON CANCER [None]
